FAERS Safety Report 8488635-0 (Version None)
Quarter: 2012Q3

REPORT INFORMATION
  Report Type: 
  Country: None (occurrence: None)
  Receive Date: 20120705
  Receipt Date: 20120702
  Transmission Date: 20120928
  Serious: Yes (Death, Hospitalization)
  Sender: FDA-Public Use
  Company Number: FR-BAYER-2012-066257

PATIENT
  Age: 40 Year
  Sex: Male

DRUGS (9)
  1. PLACEBO [Suspect]
     Indication: HEPATIC NEOPLASM MALIGNANT
     Dosage: UNK
     Route: 048
     Dates: start: 20100203, end: 20100729
  2. ACETAMINOPHEN AND TRAMADOL HCL [Concomitant]
     Dosage: UNK
     Dates: start: 20100518, end: 20100824
  3. DEXERYL [GLYCEROL,PARAFFIN, LIQUID,WHITE SOFT PARAFFIN] [Concomitant]
     Dosage: UNK
     Dates: start: 20100216
  4. SORAFENIB (RAF KINASE INHIBITOR) [Suspect]
     Indication: HEPATIC NEOPLASM MALIGNANT
     Dosage: 400 MG, QD
     Route: 048
     Dates: start: 20100203, end: 20100729
  5. ALDACTONE [Concomitant]
     Dosage: UNK
     Dates: start: 20100826
  6. PRAVASTATIN [Concomitant]
     Dosage: UNK
     Dates: start: 20100908
  7. TRAMADOL HCL [Concomitant]
     Dosage: UNK
     Dates: start: 20100609
  8. PRIMPERAN TAB [Concomitant]
     Dosage: UNK
     Dates: start: 20100723, end: 20100827
  9. VIREAD [Concomitant]
     Dosage: UNK
     Dates: start: 20090901

REACTIONS (3)
  - HEPATIC NEOPLASM MALIGNANT [None]
  - DUODENAL ULCER [None]
  - VOMITING [None]
